FAERS Safety Report 16241897 (Version 4)
Quarter: 2025Q3

REPORT INFORMATION
  Report Type: Spontaneous
  Country: EU (occurrence: EU)
  Receive Date: 20190426
  Receipt Date: 20250802
  Transmission Date: 20251020
  Serious: Yes (Death, Other)
  Sender: AUROBINDO
  Company Number: EU-AUROBINDO-AUR-APL-2019-022934

PATIENT
  Age: 39 Year
  Sex: Male

DRUGS (4)
  1. VORICONAZOLE [Interacting]
     Active Substance: VORICONAZOLE
     Indication: Pneumocystis jirovecii infection
     Route: 065
  2. VORICONAZOLE [Interacting]
     Active Substance: VORICONAZOLE
     Indication: Aspergillus infection
  3. AMPHOTERICIN B [Interacting]
     Active Substance: AMPHOTERICIN B
     Indication: Aspergillus infection
     Route: 065
  4. AMPHOTERICIN B [Interacting]
     Active Substance: AMPHOTERICIN B
     Indication: Pneumocystis jirovecii infection

REACTIONS (9)
  - Sepsis [Fatal]
  - Inhibitory drug interaction [Fatal]
  - Drug ineffective [Fatal]
  - Pneumonia [Unknown]
  - Drug interaction [Unknown]
  - Thrombocytopenia [Unknown]
  - Haemolysis [Unknown]
  - Renal failure [Unknown]
  - Respiratory failure [Unknown]
